FAERS Safety Report 14918102 (Version 1)
Quarter: 2018Q2

REPORT INFORMATION
  Report Type: Spontaneous
  Country: US (occurrence: US)
  Receive Date: 20180501
  Receipt Date: 20180501
  Transmission Date: 20180711
  Serious: Yes (Hospitalization)
  Sender: FDA-Public Use
  Company Number: None

PATIENT
  Age: 66 Year
  Sex: Male

DRUGS (1)
  1. WARFARIN [Suspect]
     Active Substance: WARFARIN
     Indication: PERIPHERAL VASCULAR DISORDER
     Dates: start: 20140803, end: 20180206

REACTIONS (5)
  - Anaemia [None]
  - Haemorrhage [None]
  - Dizziness [None]
  - Gastric haemorrhage [None]
  - Dyspnoea [None]

NARRATIVE: CASE EVENT DATE: 20171231
